FAERS Safety Report 9525220 (Version 1)
Quarter: 2013Q3

REPORT INFORMATION
  Report Type: Report from Study
  Country: JP (occurrence: JP)
  Receive Date: 20130916
  Receipt Date: 20130916
  Transmission Date: 20140515
  Serious: Yes (Hospitalization)
  Sender: FDA-Public Use
  Company Number: JP-NOVOPROD-387337

PATIENT
  Age: 15 Year
  Sex: Male
  Weight: 37.5 kg

DRUGS (4)
  1. NORDITROPIN SIMPLEXX 6.7 MG/ML [Suspect]
     Indication: GROWTH HORMONE DEFICIENCY
     Dosage: 1.1 MG, QD
     Route: 058
     Dates: start: 20090403
  2. NORDITROPIN SIMPLEXX 6.7 MG/ML [Suspect]
     Dosage: 1.1 MG, QD
     Route: 058
     Dates: start: 20111108, end: 20111215
  3. THYRADIN S [Concomitant]
     Dosage: 75 UG, QD
     Route: 048
     Dates: start: 20100209
  4. PRIMOBOLAN                         /00044802/ [Concomitant]
     Dosage: 15 MG, QD
     Route: 048

REACTIONS (1)
  - Scoliosis [Recovered/Resolved]
